FAERS Safety Report 6068712-4 (Version None)
Quarter: 2009Q1

REPORT INFORMATION
  Report Type: 
  Country: None (occurrence: None)
  Receive Date: 20090206
  Receipt Date: 20090130
  Transmission Date: 20090719
  Serious: Yes (Other)
  Sender: FDA-Public Use
  Company Number: B0557003A

PATIENT
  Age: 14 Month
  Sex: Female
  Weight: 11 kg

DRUGS (3)
  1. ZOVIRAX [Suspect]
     Dosage: 1G PER DAY
     Route: 042
     Dates: start: 20090128
  2. VALIUM [Concomitant]
     Indication: STATUS EPILEPTICUS
     Route: 065
     Dates: start: 20090127, end: 20090127
  3. PHENOBARBITAL TAB [Concomitant]
     Indication: STATUS EPILEPTICUS
     Route: 065
     Dates: start: 20090127

REACTIONS (3)
  - ACCIDENTAL OVERDOSE [None]
  - METABOLIC ACIDOSIS [None]
  - RENAL FAILURE ACUTE [None]
